FAERS Safety Report 8474621 (Version 2)
Quarter: 2013Q1

REPORT INFORMATION
  Report Type: Spontaneous
  Country: US (occurrence: US)
  Receive Date: 20120323
  Receipt Date: 20130305
  Transmission Date: 20140127
  Serious: Yes (Death, Other)
  Sender: FDA-Public Use
  Company Number: US-ENDO PHARMACEUTICALS INC.-OPIR20120027

PATIENT
  Age: 35 Year
  Sex: Male
  Weight: 79.45 kg

DRUGS (3)
  1. OPANA [Suspect]
     Indication: DRUG DIVERSION
     Dosage: UNKNOWN
     Route: 048
  2. OPANA [Suspect]
     Indication: DRUG ABUSE
  3. ALCOHOL [Suspect]
     Indication: DRUG ABUSE
     Dosage: UNKNOWN

REACTIONS (6)
  - Toxicity to various agents [None]
  - Drug interaction [None]
  - Accidental overdose [None]
  - Alcohol poisoning [None]
  - Drug abuse [None]
  - Drug diversion [None]
